FAERS Safety Report 16900526 (Version 6)
Quarter: 2021Q2

REPORT INFORMATION
  Report Type: Spontaneous
  Country: DE (occurrence: DE)
  Receive Date: 20191009
  Receipt Date: 20210607
  Transmission Date: 20210716
  Serious: Yes (Death, Other)
  Sender: FDA-Public Use
  Company Number: DE-B.I. PHARMACEUTICALS,INC./RIDGEFIELD-2019-BI-106440

PATIENT
  Age: 62 Year
  Sex: Male

DRUGS (2)
  1. VARGATEF [Suspect]
     Active Substance: NINTEDANIB
     Indication: NON-SMALL CELL LUNG CANCER
     Route: 048
     Dates: start: 20180209, end: 20180326
  2. DOCETAXEL. [Suspect]
     Active Substance: DOCETAXEL
     Indication: NON-SMALL CELL LUNG CANCER
     Dosage: DAILY DOSE OF DOCETAXEL: 75 MG/M2 BODY SURFACE AREA?ROUTE: D1, G3W
     Route: 042
     Dates: start: 20180209, end: 20180326

REACTIONS (2)
  - Death [Fatal]
  - Non-small cell lung cancer [Unknown]

NARRATIVE: CASE EVENT DATE: 20180326
